FAERS Safety Report 11949337 (Version 1)
Quarter: 2016Q1

REPORT INFORMATION
  Report Type: Report from Study
  Country: US (occurrence: US)
  Receive Date: 20160125
  Receipt Date: 20160125
  Transmission Date: 20160526
  Serious: No
  Sender: FDA-Public Use
  Company Number: US-ABBVIE-15K-163-1330363-00

PATIENT
  Age: 49 Year
  Sex: Female
  Weight: 72.64 kg

DRUGS (6)
  1. HUMIRA [Suspect]
     Active Substance: ADALIMUMAB
     Indication: RHEUMATOID ARTHRITIS
     Route: 058
     Dates: start: 201402, end: 20141226
  2. FLUOXETINE [Concomitant]
     Active Substance: FLUOXETINE HYDROCHLORIDE
     Indication: BIPOLAR DISORDER
  3. TEMAZEPAM. [Concomitant]
     Active Substance: TEMAZEPAM
     Indication: BIPOLAR DISORDER
  4. PREDNISONE. [Concomitant]
     Active Substance: PREDNISONE
     Indication: RHEUMATOID ARTHRITIS
  5. LAMICTAL [Concomitant]
     Active Substance: LAMOTRIGINE
     Indication: BIPOLAR DISORDER
  6. SUBOXONE [Concomitant]
     Active Substance: BUPRENORPHINE HYDROCHLORIDE\NALOXONE HYDROCHLORIDE
     Indication: BIPOLAR DISORDER

REACTIONS (10)
  - Red blood cell sedimentation rate increased [Unknown]
  - Pneumonia [Unknown]
  - Asthenia [Recovering/Resolving]
  - Hyperhidrosis [Not Recovered/Not Resolved]
  - Cough [Recovering/Resolving]
  - Migraine [Recovered/Resolved]
  - Paranasal sinus discomfort [Recovered/Resolved]
  - White blood cell count increased [Unknown]
  - Dyspnoea [Recovering/Resolving]
  - Headache [Recovered/Resolved]

NARRATIVE: CASE EVENT DATE: 20141226
